FAERS Safety Report 25668744 (Version 1)
Quarter: 2025Q3

REPORT INFORMATION
  Report Type: Spontaneous
  Country: CN (occurrence: CN)
  Receive Date: 20250812
  Receipt Date: 20250812
  Transmission Date: 20251021
  Serious: Yes (Other)
  Sender: INDOCO REMEDIES LIMITED
  Company Number: CN-MLMSERVICE-20250801-PI599816-00068-1

PATIENT
  Age: 64 Year
  Sex: Male

DRUGS (4)
  1. BRIMONIDINE TARTRATE [Suspect]
     Active Substance: BRIMONIDINE TARTRATE
     Indication: Glaucoma
     Route: 065
     Dates: start: 2023
  2. CARTEOLOL HYDROCHLORIDE [Suspect]
     Active Substance: CARTEOLOL HYDROCHLORIDE
     Indication: Glaucoma
     Route: 065
     Dates: start: 2023
  3. BRINZOLAMIDE [Suspect]
     Active Substance: BRINZOLAMIDE
     Indication: Glaucoma
     Route: 065
     Dates: start: 2023
  4. MANNITOL [Concomitant]
     Active Substance: MANNITOL
     Indication: Glaucoma
     Route: 042
     Dates: start: 2023

REACTIONS (3)
  - Ocular discomfort [Recovering/Resolving]
  - Conjunctival hyperaemia [Recovering/Resolving]
  - Erythema of eyelid [Recovering/Resolving]

NARRATIVE: CASE EVENT DATE: 20230101
